FAERS Safety Report 7961323-2 (Version None)
Quarter: 2011Q4

REPORT INFORMATION
  Report Type: 
  Country: None (occurrence: None)
  Receive Date: 20111202
  Receipt Date: 20111123
  Transmission Date: 20120403
  Serious: Yes (Hospitalization, Disabling, Other)
  Sender: FDA-Public Use
  Company Number: 2011MA008215

PATIENT
  Sex: Female
  Weight: 88.4514 kg

DRUGS (27)
  1. DEXAMETHASONE [Concomitant]
  2. DR. RUTH'S FORMULA (LIDOCAINE, BENADRYL, NYSTATIN) [Concomitant]
  3. OMEPRAZOLE [Concomitant]
  4. PROPOXYPHENE NAPSYLATE [Concomitant]
  5. TESSSALON [Concomitant]
  6. VITAMIN D [Concomitant]
  7. METOCLOPRAMIDE [Suspect]
     Indication: GASTROOESOPHAGEAL REFLUX DISEASE
     Dosage: 10 MG;QID;PO
     Route: 048
     Dates: start: 20020101, end: 20070901
  8. HYDROCODONE BITARTRATE AND ACETAMINOPHEN [Concomitant]
  9. PROMETHAZINE [Concomitant]
  10. DEMEROL [Concomitant]
  11. IPRATROPIUM BROMIDE [Concomitant]
  12. POTASSIUM ACETATE [Concomitant]
  13. FLUCONAZOLE [Concomitant]
  14. LORAZEPAM [Concomitant]
  15. NAPROXEN (ALEVE) [Concomitant]
  16. FUROSEMIDE [Concomitant]
  17. PREDNISONE [Concomitant]
  18. ROBITUSSIN-N [Concomitant]
  19. MIRALAX [Concomitant]
  20. ALBUTEROL [Concomitant]
  21. ONDANSETRON [Concomitant]
  22. PANTOPRAZOLE [Concomitant]
  23. PROCHLORPERAZINE [Concomitant]
  24. WARFARIN SODIUM [Concomitant]
  25. ETOPOSIDE [Concomitant]
  26. METHYLPHENIDATE [Concomitant]
  27. DARVOCET-N 50 [Concomitant]

REACTIONS (4)
  - TARDIVE DYSKINESIA [None]
  - EMOTIONAL DISORDER [None]
  - INJURY [None]
  - FAMILY STRESS [None]
